FAERS Safety Report 9976776 (Version 1)
Quarter: 2014Q1

REPORT INFORMATION
  Report Type: Report from Study
  Country: US (occurrence: US)
  Receive Date: 20140306
  Receipt Date: 20140306
  Transmission Date: 20141002
  Serious: No
  Sender: FDA-Public Use
  Company Number: US-ABBVIE-13P-163-1165012-00

PATIENT
  Age: 24 Year
  Sex: Female

DRUGS (7)
  1. HUMIRA [Suspect]
     Indication: CROHN^S DISEASE
     Dates: start: 20131001
  2. HUMIRA [Suspect]
     Dates: start: 20131015
  3. ZYRTEC [Concomitant]
     Indication: SEASONAL ALLERGY
  4. NASAL SPRAY [Concomitant]
     Indication: SEASONAL ALLERGY
  5. PROTONIX [Concomitant]
     Indication: CROHN^S DISEASE
     Dosage: IN AM
  6. GABAPENTIN [Concomitant]
     Indication: CROHN^S DISEASE
  7. MIRTAZEPINE TEVA [Concomitant]
     Indication: DEPRESSION

REACTIONS (2)
  - Gastrointestinal infection [Recovering/Resolving]
  - Crohn^s disease [Recovering/Resolving]
